FAERS Safety Report 19179028 (Version 2)
Quarter: 2021Q2

REPORT INFORMATION
  Report Type: Report from Study
  Country: CN (occurrence: CN)
  Receive Date: 20210426
  Receipt Date: 20210430
  Transmission Date: 20210717
  Serious: Yes (Other)
  Sender: FDA-Public Use
  Company Number: CN-B.I. PHARMACEUTICALS,INC./RIDGEFIELD-2021-BI-098807

PATIENT
  Age: 50 Year
  Sex: Female

DRUGS (6)
  1. CAPECITABINE. [Concomitant]
     Active Substance: CAPECITABINE
     Indication: MALIGNANT PLEURAL EFFUSION
  2. GILOTRIF [Suspect]
     Active Substance: AFATINIB
     Indication: LUNG ADENOCARCINOMA STAGE IV
     Route: 065
  3. GILOTRIF [Suspect]
     Active Substance: AFATINIB
     Indication: GENE MUTATION
  4. LAPATINIB [Concomitant]
     Active Substance: LAPATINIB
     Indication: MALIGNANT PLEURAL EFFUSION
  5. CAPECITABINE. [Concomitant]
     Active Substance: CAPECITABINE
     Indication: METASTASES TO LYMPH NODES
     Dosage: (2,000 MG, DIVIDED INTO TWICE DAILY)
  6. LAPATINIB [Concomitant]
     Active Substance: LAPATINIB
     Indication: METASTASES TO LYMPH NODES
     Dosage: (1,250 MG, ONCE DAILY)

REACTIONS (2)
  - Drug ineffective [Unknown]
  - Therapy partial responder [Unknown]
